FAERS Safety Report 8318557-7 (Version None)
Quarter: 2012Q2

REPORT INFORMATION
  Report Type: 
  Country: None (occurrence: None)
  Receive Date: 20120427
  Receipt Date: 20120418
  Transmission Date: 20120825
  Serious: Yes (Hospitalization, Other)
  Sender: FDA-Public Use
  Company Number: DK-ELI_LILLY_AND_COMPANY-DK201204007017

PATIENT
  Sex: Female
  Weight: 64 kg

DRUGS (7)
  1. ORAP [Concomitant]
     Indication: TOURETTE'S DISORDER
     Dosage: 2 MG, UNK
     Route: 048
     Dates: start: 20070101, end: 20120323
  2. CATAPRESAN                         /00171101/ [Concomitant]
     Dosage: 25 UG, UNK
  3. ZIPRASIDONE HYDROCHLORIDE [Concomitant]
     Dosage: 60 MG, UNK
  4. ZYPREXA [Suspect]
     Indication: PSYCHOTIC DISORDER
     Dosage: 10 MG, PRN
     Route: 048
     Dates: start: 20120224, end: 20120323
  5. ZIPRASIDONE HYDROCHLORIDE [Concomitant]
     Indication: PSYCHOTIC DISORDER
     Dosage: 40 MG, BID
     Route: 048
     Dates: start: 20100101, end: 20120323
  6. TOPAMAX [Concomitant]
     Indication: TOURETTE'S DISORDER
     Dosage: UNK
     Dates: start: 20070101, end: 20120323
  7. ZIPRASIDONE HYDROCHLORIDE [Concomitant]
     Dosage: 80 MG, UNK

REACTIONS (6)
  - NEUROLEPTIC MALIGNANT SYNDROME [None]
  - PSYCHOTIC DISORDER [None]
  - ASPARTATE AMINOTRANSFERASE INCREASED [None]
  - LEUKOCYTOSIS [None]
  - STUPOR [None]
  - BLOOD CREATINE PHOSPHOKINASE INCREASED [None]
